FAERS Safety Report 11165888 (Version 2)
Quarter: 2016Q1

REPORT INFORMATION
  Report Type: Report from Study
  Country: US (occurrence: US)
  Receive Date: 20150604
  Receipt Date: 20160108
  Transmission Date: 20160525
  Serious: Yes (Other)
  Sender: FDA-Public Use
  Company Number: US-GILEAD-2015-0156266

PATIENT
  Age: 62 Year
  Sex: Female

DRUGS (1)
  1. LEDIPASVIR/SOFOSBUVIR [Suspect]
     Active Substance: LEDIPASVIR\SOFOSBUVIR
     Indication: CHRONIC HEPATITIS C
     Dosage: 1 DF, UNK
     Route: 048
     Dates: start: 20150122, end: 20150709

REACTIONS (11)
  - Dysarthria [Unknown]
  - Thyroid disorder [Unknown]
  - Fatigue [Unknown]
  - Hepatic encephalopathy [Unknown]
  - Diabetes mellitus [Unknown]
  - Asthenia [Unknown]
  - Ammonia increased [Unknown]
  - Feeling hot [Unknown]
  - Constipation [Unknown]
  - Tooth extraction [Unknown]
  - Energy increased [Unknown]

NARRATIVE: CASE EVENT DATE: 201505
